FAERS Safety Report 6204449-6 (Version None)
Quarter: 2009Q2

REPORT INFORMATION
  Report Type: 
  Country: None (occurrence: None)
  Receive Date: 20090527
  Receipt Date: 20090421
  Transmission Date: 20091009
  Serious: No
  Sender: FDA-Public Use
  Company Number: US-BAYER-200911306BCC

PATIENT
  Age: 66 Year
  Sex: Female
  Weight: 54 kg

DRUGS (3)
  1. ALEVE [Suspect]
     Indication: MUSCULOSKELETAL PAIN
     Dosage: TOTAL DAILY DOSE: 440 MG  UNIT DOSE: 220 MG
     Route: 048
     Dates: start: 20090420
  2. THYROID TAB [Concomitant]
     Indication: THYROID DISORDER
     Dosage: UNK
     Route: 065
  3. NATURES WAY MULTI-VITAMIN [Concomitant]
     Dosage: UNK
     Route: 065

REACTIONS (1)
  - PRURITUS GENERALISED [None]
